FAERS Safety Report 5669660-1 (Version None)
Quarter: 2008Q1

REPORT INFORMATION
  Report Type: 
  Country: None (occurrence: None)
  Receive Date: 20080312
  Receipt Date: 20080312
  Transmission Date: 20080703
  Serious: No
  Sender: FDA-Public Use
  Company Number: None

PATIENT
  Age: 28 Year
  Sex: Male
  Weight: 65.7716 kg

DRUGS (1)
  1. REGLAN [Suspect]
     Indication: VOMITING
     Dosage: 10MG X1 IV BOLUS  1 TIME
     Route: 040
     Dates: start: 20080131, end: 20080131

REACTIONS (3)
  - DIARRHOEA [None]
  - PALPITATIONS [None]
  - VOMITING [None]
